FAERS Safety Report 25851757 (Version 1)
Quarter: 2025Q3

REPORT INFORMATION
  Report Type: Spontaneous
  Country: US (occurrence: None)
  Receive Date: 20250925
  Receipt Date: 20250925
  Transmission Date: 20251020
  Serious: Yes (Other)
  Sender: FDA-CTU
  Company Number: None

PATIENT
  Age: 14 Year
  Sex: Male
  Weight: 58.5 kg

DRUGS (2)
  1. CLARAVIS [Suspect]
     Active Substance: ISOTRETINOIN
     Indication: Acne
     Dates: start: 20250517, end: 20250925
  2. ACCUTANE [Concomitant]
     Active Substance: ISOTRETINOIN

REACTIONS (9)
  - Psychotic disorder [None]
  - Delusion [None]
  - Illogical thinking [None]
  - Social avoidant behaviour [None]
  - Fear [None]
  - Paranoia [None]
  - Anger [None]
  - Agitation [None]
  - Aggression [None]

NARRATIVE: CASE EVENT DATE: 20250925
